FAERS Safety Report 8453815-7 (Version None)
Quarter: 2012Q2

REPORT INFORMATION
  Report Type: 
  Country: None (occurrence: None)
  Receive Date: 20120323
  Receipt Date: 20111101
  Transmission Date: 20120825
  Serious: Yes (Hospitalization)
  Sender: FDA-Public Use
  Company Number: 163-21880-11110428

PATIENT
  Age: 80 Year
  Sex: Female

DRUGS (7)
  1. OCUVITE (OCUVITE) [Concomitant]
  2. CENTRUM (CENTRUM) [Concomitant]
  3. GLUCOSAMIDE-CHONDROITIN (GLUCOSAMIDE W/CHONDROITIN SULFATE) [Concomitant]
  4. MORPHINE SULFATE INJ [Concomitant]
  5. CALCIUM CARBONATE [Concomitant]
  6. TYLENOL ARTHRITIS PAIN (PARACETAMOL) [Concomitant]
  7. REVLIMID [Suspect]
     Indication: MULTIPLE MYELOMA
     Dosage: 10 MG, DAILY X 21 DAYS, PO
     Route: 048
     Dates: start: 20090213

REACTIONS (1)
  - PULMONARY EMBOLISM [None]
